FAERS Safety Report 21308629 (Version 1)
Quarter: 2022Q3

REPORT INFORMATION
  Report Type: Report from Study
  Country: US (occurrence: None)
  Receive Date: 20220908
  Receipt Date: 20220908
  Transmission Date: 20221026
  Serious: Yes (Other)
  Sender: FDA-Public Use
  Company Number: 2022A304605

PATIENT
  Sex: Male

DRUGS (1)
  1. CALQUENCE [Suspect]
     Active Substance: ACALABRUTINIB
     Indication: Chronic lymphocytic leukaemia
     Route: 048
     Dates: start: 20220713

REACTIONS (4)
  - Illness [Unknown]
  - Throat tightness [Recovering/Resolving]
  - Feeding disorder [Recovering/Resolving]
  - Weight decreased [Recovering/Resolving]
